FAERS Safety Report 10242268 (Version 1)
Quarter: 2014Q2

REPORT INFORMATION
  Report Type: Spontaneous
  Country: KR (occurrence: KR)
  Receive Date: 20140617
  Receipt Date: 20140617
  Transmission Date: 20141212
  Serious: Yes (Hospitalization, Other)
  Sender: FDA-Public Use
  Company Number: KR-BAXTER-2014BAX030569

PATIENT
  Age: 46 Year
  Sex: Male
  Weight: 86 kg

DRUGS (4)
  1. DIANEAL PD-2 1.5 [Suspect]
     Indication: PERITONEAL DIALYSIS
     Route: 033
     Dates: start: 20111111
  2. DIANEAL PD-2 1.5 [Suspect]
     Indication: RENAL FAILURE CHRONIC
  3. DIANEAL PD-2 2.5% [Suspect]
     Indication: PERITONEAL DIALYSIS
     Route: 033
     Dates: start: 20111111
  4. DIANEAL PD-2 2.5% [Suspect]
     Indication: RENAL FAILURE CHRONIC

REACTIONS (6)
  - Hypophagia [Not Recovered/Not Resolved]
  - Peritoneal cloudy effluent [Not Recovered/Not Resolved]
  - Nausea [Not Recovered/Not Resolved]
  - Vomiting [Not Recovered/Not Resolved]
  - Asthenia [None]
  - Neutrophil percentage increased [None]
